FAERS Safety Report 7259038-1 (Version None)
Quarter: 2011Q1

REPORT INFORMATION
  Report Type: 
  Country: None (occurrence: None)
  Receive Date: 20110129
  Receipt Date: 20100621
  Transmission Date: 20110831
  Serious: No
  Sender: FDA-Public Use
  Company Number: US-ABBOTT-10P-163-0652848-00

PATIENT
  Sex: Female

DRUGS (4)
  1. HUMIRA [Suspect]
     Route: 058
     Dates: start: 20100601
  2. METHOTREXATE [Concomitant]
     Indication: RHEUMATOID ARTHRITIS
  3. HUMIRA [Suspect]
     Indication: RHEUMATOID ARTHRITIS
     Route: 058
     Dates: start: 20091101, end: 20100301
  4. HUMIRA [Suspect]
     Route: 058
     Dates: start: 20100301, end: 20100401

REACTIONS (3)
  - PARAESTHESIA [None]
  - SWELLING FACE [None]
  - HYPOAESTHESIA FACIAL [None]
